FAERS Safety Report 7198208-8 (Version None)
Quarter: 2010Q4

REPORT INFORMATION
  Report Type: 
  Country: None (occurrence: None)
  Receive Date: 20101227
  Receipt Date: 20101216
  Transmission Date: 20110411
  Serious: Yes (Other)
  Sender: FDA-Public Use
  Company Number: CA-JNJFOC-20101206529

PATIENT
  Sex: Female
  Weight: 75 kg

DRUGS (11)
  1. REMICADE [Suspect]
     Indication: PSORIASIS
     Route: 042
  2. REMICADE [Suspect]
     Route: 042
  3. METFORMIN HCL [Concomitant]
     Dosage: 1/2 OF 500 MG. TABLET
     Route: 065
  4. VALACYCLOVIR [Concomitant]
     Dosage: 1/2 OF 500 MG TABLET
     Route: 065
  5. ASPIRIN [Concomitant]
     Route: 065
  6. AMITRIPTYLINE [Concomitant]
     Route: 065
  7. PRISTIQ [Concomitant]
     Route: 065
  8. CRESTOR [Concomitant]
     Route: 065
  9. ATIVAN [Concomitant]
     Dosage: PRN
     Route: 065
  10. NOVOLIN N [Concomitant]
     Indication: DIABETES MELLITUS
     Dosage: IN AM
     Route: 058
  11. NOVOLIN N [Concomitant]
     Dosage: IN PM
     Route: 058

REACTIONS (3)
  - EYE IRRITATION [None]
  - FOOT FRACTURE [None]
  - PSORIASIS [None]
